FAERS Safety Report 24731428 (Version 1)
Quarter: 2024Q4

REPORT INFORMATION
  Report Type: Spontaneous
  Country: CN (occurrence: CN)
  Receive Date: 20241213
  Receipt Date: 20241213
  Transmission Date: 20250115
  Serious: Yes (Other)
  Sender: PFIZER
  Company Number: CN-PFIZER INC-PV202400160861

PATIENT
  Age: 72 Year
  Sex: Male

DRUGS (1)
  1. METHYLPREDNISOLONE SODIUM SUCCINATE [Suspect]
     Active Substance: METHYLPREDNISOLONE SODIUM SUCCINATE
     Indication: Antiinflammatory therapy
     Dosage: 40 MG, 1X/DAY
     Route: 042
     Dates: start: 20240904, end: 20240906

REACTIONS (1)
  - Delirium [Recovering/Resolving]

NARRATIVE: CASE EVENT DATE: 20240906
